FAERS Safety Report 22345010 (Version 1)
Quarter: 2023Q2

REPORT INFORMATION
  Report Type: Report from Study
  Country: CO (occurrence: CO)
  Receive Date: 20230519
  Receipt Date: 20230519
  Transmission Date: 20230722
  Serious: Yes (Other)
  Sender: FDA-Public Use
  Company Number: CO-ABBVIE-21K-036-4215499-00

PATIENT
  Sex: Female
  Weight: 55 kg

DRUGS (2)
  1. HUMIRA [Suspect]
     Active Substance: ADALIMUMAB
     Indication: Psoriasis
     Route: 058
     Dates: start: 20161104
  2. HUMIRA [Suspect]
     Active Substance: ADALIMUMAB

REACTIONS (10)
  - Ovarian cyst [Recovering/Resolving]
  - Skin injury [Recovering/Resolving]
  - Uterine leiomyoma [Not Recovered/Not Resolved]
  - Weight decreased [Recovered/Resolved]
  - Psoriasis [Not Recovered/Not Resolved]
  - Abdominal pain [Not Recovered/Not Resolved]
  - Headache [Not Recovered/Not Resolved]
  - Suture related complication [Recovering/Resolving]
  - Weight decreased [Not Recovered/Not Resolved]
  - Inflammation [Recovering/Resolving]

NARRATIVE: CASE EVENT DATE: 20210101
